FAERS Safety Report 13600681 (Version 1)
Quarter: 2017Q2

REPORT INFORMATION
  Report Type: Spontaneous
  Country: US (occurrence: US)
  Receive Date: 20170531
  Receipt Date: 20170531
  Transmission Date: 20170830
  Serious: No
  Sender: FDA-Public Use
  Company Number: None

PATIENT
  Sex: Male

DRUGS (1)
  1. TALTZ [Suspect]
     Active Substance: IXEKIZUMAB
     Indication: CROHN^S DISEASE
     Dosage: 80MG EVERY 4 WEEKS SUBCUTANEOUSLY
     Route: 058
     Dates: start: 20161021

REACTIONS (2)
  - Depression [None]
  - Rash [None]
